FAERS Safety Report 22054980 (Version 1)
Quarter: 2023Q1

REPORT INFORMATION
  Report Type: Spontaneous
  Country: CN (occurrence: CN)
  Receive Date: 20230302
  Receipt Date: 20230302
  Transmission Date: 20230418
  Serious: Yes (Other)
  Sender: FDA-Public Use
  Company Number: CN-002147023-NVSC2023CN043526

PATIENT
  Age: 74 Year
  Sex: Male
  Weight: 55 kg

DRUGS (2)
  1. VORICONAZOLE [Suspect]
     Active Substance: VORICONAZOLE
     Indication: Interstitial lung disease
     Dosage: 0.2 G, BID
     Route: 048
     Dates: start: 20230209, end: 20230209
  2. VORICONAZOLE [Suspect]
     Active Substance: VORICONAZOLE
     Indication: Respiratory tract infection

REACTIONS (4)
  - Depressed level of consciousness [Recovering/Resolving]
  - Interstitial lung disease [Recovering/Resolving]
  - Dizziness [Recovering/Resolving]
  - Pyrexia [Recovering/Resolving]

NARRATIVE: CASE EVENT DATE: 20230209
